FAERS Safety Report 4282333-5 (Version None)
Quarter: 2004Q1

REPORT INFORMATION
  Report Type: 
  Country: None (occurrence: None)
  Receive Date: 20040112
  Receipt Date: 20031028
  Transmission Date: 20041129
  Serious: Yes (Other)
  Sender: FDA-Public Use
  Company Number: 350343

PATIENT
  Age: 47 Year
  Sex: Male

DRUGS (2)
  1. FUZEON [Suspect]
     Indication: ACQUIRED IMMUNODEFICIENCY SYNDROME
     Dosage: SUBCUTANEOUS
     Route: 058
     Dates: start: 20030905
  2. AZT [Concomitant]

REACTIONS (4)
  - ADVERSE EVENT [None]
  - CHILLS [None]
  - HYPERSENSITIVITY [None]
  - URTICARIA [None]
